FAERS Safety Report 5373412-X (Version None)
Quarter: 2007Q2

REPORT INFORMATION
  Report Type: 
  Country: None (occurrence: None)
  Receive Date: 20070626
  Receipt Date: 20070626
  Transmission Date: 20071010
  Serious: No
  Sender: FDA-Public Use
  Company Number: None

PATIENT
  Age: 29 Year
  Sex: Female
  Weight: 72.5755 kg

DRUGS (2)
  1. WELLBUTRIN XL [Suspect]
     Indication: MAJOR DEPRESSION
     Dosage: 150 MG BID PO
     Route: 048
     Dates: start: 20060210, end: 20060605
  2. CELEXA [Suspect]
     Indication: MAJOR DEPRESSION
     Dosage: 40MG QD PO
     Route: 048
     Dates: start: 20060106, end: 20060210

REACTIONS (2)
  - DIARRHOEA [None]
  - TREMOR [None]
